FAERS Safety Report 9535974 (Version 1)
Quarter: 2013Q2

REPORT INFORMATION
  Report Type: Spontaneous
  Country: US (occurrence: None)
  Receive Date: 20130507
  Receipt Date: 20130507
  Transmission Date: 20140414
  Serious: No
  Sender: FDA-Public Use
  Company Number: PHEH2012US023615

PATIENT
  Age: 62 Year
  Sex: Female
  Weight: 60 kg

DRUGS (7)
  1. AFINITOR (RAD) UNKNOWN [Suspect]
     Indication: BREAST CANCER
     Route: 048
     Dates: start: 20120319
  2. CENTRUM (MINERALS NOS, VITAMINS NOS) [Concomitant]
  3. AROMASIN (EXEMESTANE) [Concomitant]
  4. LIPITOR (ATORVASTATIN CALCIUM) [Concomitant]
  5. FISH OIL (FISH OIL) [Concomitant]
  6. CALCIUM (CALCIUM) [Concomitant]
  7. GLUCOSAMINE + CHONDROITIN (CHONDROITIN SULFATE, GLUCOSAMINE SULFATE) [Concomitant]

REACTIONS (3)
  - Stomatitis [None]
  - Aphthous stomatitis [None]
  - Drug ineffective [None]
